FAERS Safety Report 4361075-1 (Version None)
Quarter: 2004Q2

REPORT INFORMATION
  Report Type: 
  Country: None (occurrence: None)
  Receive Date: 20040517
  Receipt Date: 20040503
  Transmission Date: 20050107
  Serious: Yes (Hospitalization, Congenital Anomaly, Other)
  Sender: FDA-Public Use
  Company Number: 2004002257

PATIENT
  Age: 74 Year
  Sex: Male
  Weight: 60 kg

DRUGS (10)
  1. LIPITOR [Suspect]
     Indication: HYPERCHOLESTEROLAEMIA
     Dosage: 5 MG (1 IN 1 D), ORAL
     Route: 048
     Dates: start: 20031108, end: 20031222
  2. ALLOPURINOL [Suspect]
     Indication: HYPERTENSION
     Dosage: 4 MG (1 IN 1 D), ORAL
     Route: 048
     Dates: start: 20031108, end: 20030121
  3. NIFEDIPINE [Suspect]
     Indication: HYPERTENSION
     Dosage: 20 MG (1 IN 1 D), ORAL
     Route: 048
     Dates: start: 20031108, end: 20031222
  4. DILTIAZEM HYDROCHLORIDE [Suspect]
     Indication: HYPERTENSION
     Dosage: 100 MG (1 IN 1 D), ORAL
     Route: 048
     Dates: start: 20031108, end: 20031222
  5. ALLOPURINOL [Suspect]
     Indication: HYPERURICAEMIA
     Dosage: 100 MG, ORAL
     Route: 048
     Dates: start: 20031116, end: 20031222
  6. FAMOTIDINE [Suspect]
     Indication: GASTRITIS
     Dosage: 10 MG, ORAL
     Route: 048
     Dates: start: 20031108
  7. XANTOFYL PALMITATE [Concomitant]
  8. GLICLAZIDE [Concomitant]
  9. EPOETIN BETA [Concomitant]
  10. FUROSEMIDE [Concomitant]

REACTIONS (42)
  - ALANINE AMINOTRANSFERASE INCREASED [None]
  - ASPARTATE AMINOTRANSFERASE INCREASED [None]
  - BASOPHIL PERCENTAGE INCREASED [None]
  - BLOOD ALBUMIN DECREASED [None]
  - BLOOD ALKALINE PHOSPHATASE INCREASED [None]
  - BLOOD CALCIUM DECREASED [None]
  - BLOOD CHLORIDE DECREASED [None]
  - BLOOD GLUCOSE INCREASED [None]
  - BLOOD LACTATE DEHYDROGENASE INCREASED [None]
  - BLOOD POTASSIUM DECREASED [None]
  - BLOOD SODIUM DECREASED [None]
  - C-REACTIVE PROTEIN INCREASED [None]
  - CREATINE PHOSPHOKINASE DECREASED [None]
  - DIABETES MELLITUS [None]
  - DIALYSIS [None]
  - ERYTHEMA [None]
  - FUNGAL SKIN INFECTION [None]
  - HAEMATOCRIT DECREASED [None]
  - HAEMOGLOBIN DECREASED [None]
  - HYPERSENSITIVITY [None]
  - HYPERTENSION [None]
  - HYPERURICAEMIA [None]
  - HYPOGLYCAEMIA [None]
  - LEUKOCYTE ALKALINE PHOSPHATASE INCREASED [None]
  - LIVER DISORDER [None]
  - LYMPHOCYTE PERCENTAGE INCREASED [None]
  - MARKEDLY REDUCED DIETARY INTAKE [None]
  - MEAN CELL HAEMOGLOBIN DECREASED [None]
  - MEAN CELL VOLUME DECREASED [None]
  - MONOCYTE PERCENTAGE INCREASED [None]
  - NEPHROGENIC ANAEMIA [None]
  - NEUTROPHIL PERCENTAGE INCREASED [None]
  - OEDEMA PERIPHERAL [None]
  - PLATELET COUNT DECREASED [None]
  - PURPURA [None]
  - PYREXIA [None]
  - RASH [None]
  - RASH GENERALISED [None]
  - RED BLOOD CELL COUNT DECREASED [None]
  - RENAL FAILURE [None]
  - RETINAL DEPIGMENTATION [None]
  - WHITE BLOOD CELL COUNT INCREASED [None]
